FAERS Safety Report 20306417 (Version 1)
Quarter: 2022Q1

REPORT INFORMATION
  Report Type: Spontaneous
  Country: US (occurrence: US)
  Receive Date: 20220106
  Receipt Date: 20220106
  Transmission Date: 20220423
  Serious: Yes (Other)
  Sender: FDA-Public Use
  Company Number: US-PARI RESPIRATORY EQUIPMENT, INC.-2021PAR00002

PATIENT
  Age: 34 Year
  Sex: Male

DRUGS (1)
  1. KITABIS PAK [Suspect]
     Active Substance: TOBRAMYCIN
     Dosage: 300 MG, 2X/DAY
     Dates: start: 202012

REACTIONS (7)
  - Dyspnoea [Unknown]
  - Epistaxis [Unknown]
  - Sputum discoloured [Unknown]
  - Pyrexia [Unknown]
  - Rhinorrhoea [Unknown]
  - Sneezing [Unknown]
  - Nasal congestion [Unknown]

NARRATIVE: CASE EVENT DATE: 20210118
